FAERS Safety Report 4957604-7 (Version None)
Quarter: 2006Q1

REPORT INFORMATION
  Report Type: 
  Country: None (occurrence: None)
  Receive Date: 20060330
  Receipt Date: 20060314
  Transmission Date: 20060701
  Serious: Yes (Other)
  Sender: FDA-Public Use
  Company Number: SE-SANOFI-SYNTHELABO-A01200602110

PATIENT
  Age: 79 Year
  Sex: Male

DRUGS (1)
  1. XATRAL OD [Suspect]
     Indication: PROSTATECTOMY
     Route: 048
     Dates: start: 20051201, end: 20060115

REACTIONS (2)
  - CARDIAC FAILURE [None]
  - THROMBOCYTOPENIA [None]
